FAERS Safety Report 8573839-9 (Version None)
Quarter: 2012Q3

REPORT INFORMATION
  Report Type: 
  Country: None (occurrence: None)
  Receive Date: 20120806
  Receipt Date: 20110916
  Transmission Date: 20120928
  Serious: No
  Sender: FDA-Public Use
  Company Number: US-GLAXOSMITHKLINE-A0944970A

PATIENT
  Sex: Female

DRUGS (2)
  1. FLUTICASONE PROPIONATE [Suspect]
     Indication: CARDIAC FAILURE CONGESTIVE
     Dosage: 2SPR PER DAY
     Route: 055
     Dates: start: 20100901
  2. MULTIPLE MEDICATIONS [Concomitant]

REACTIONS (3)
  - DYSPNOEA [None]
  - TREMOR [None]
  - READING DISORDER [None]
